FAERS Safety Report 6277845-9 (Version None)
Quarter: 2009Q3

REPORT INFORMATION
  Report Type: 
  Country: None (occurrence: None)
  Receive Date: 20090722
  Receipt Date: 20090710
  Transmission Date: 20100115
  Serious: Yes (Other)
  Sender: FDA-Public Use
  Company Number: US-WYE-H10088609

PATIENT
  Sex: Female
  Weight: 75 kg

DRUGS (13)
  1. PREMARIN [Suspect]
     Indication: HORMONE REPLACEMENT THERAPY
     Dosage: UNKNOWN
     Route: 065
  2. CARBATROL [Concomitant]
     Indication: CONVULSION
     Dosage: TWICE A DAY
     Route: 065
  3. INSULIN [Concomitant]
     Indication: DIABETES MELLITUS
     Dosage: UNKNOWN
     Route: 065
  4. ALBUTEROL [Concomitant]
     Indication: ASTHMA
     Dosage: AS REQUIRED
     Route: 055
  5. CALCIUM CARBONATE [Concomitant]
     Indication: ROUTINE HEALTH MAINTENANCE
     Dosage: UNKNOWN
     Route: 065
  6. SINGULAIR [Concomitant]
     Indication: ASTHMA
     Dosage: 1 TIME A DAY
     Route: 065
  7. HYDRALAZINE HCL [Concomitant]
     Indication: HYPERTENSION
     Route: 065
  8. PREDNISONE TAB [Concomitant]
     Indication: ASTHMA
     Dosage: AS REQUIRED
     Route: 065
  9. TRICOR [Concomitant]
     Indication: BLOOD CHOLESTEROL INCREASED
     Dosage: UNKNOWN
     Route: 065
  10. VERAPAMIL [Concomitant]
     Indication: HYPERTENSION
     Route: 065
  11. POTASSIUM CHLORIDE [Concomitant]
     Indication: ELECTROLYTE SUBSTITUTION THERAPY
     Dosage: UNKNOWN
     Route: 065
  12. REBIF [Suspect]
     Indication: MULTIPLE SCLEROSIS
     Route: 058
     Dates: start: 20071228
  13. ASPIRIN [Concomitant]
     Indication: PROPHYLAXIS
     Dosage: 1 PER DAY
     Route: 065

REACTIONS (4)
  - CARDIAC SEPTAL DEFECT [None]
  - CHEST DISCOMFORT [None]
  - COUGH [None]
  - THROMBOPHLEBITIS SUPERFICIAL [None]
